FAERS Safety Report 7423876-2 (Version None)
Quarter: 2011Q2

REPORT INFORMATION
  Report Type: 
  Country: None (occurrence: None)
  Receive Date: 20110419
  Receipt Date: 20110414
  Transmission Date: 20111010
  Serious: Yes (Death)
  Sender: FDA-Public Use
  Company Number: TW-ROCHE-771789

PATIENT
  Age: 58 Year
  Sex: Female

DRUGS (1)
  1. MIRCERA [Suspect]
     Dosage: FREQUENCY : QM
     Route: 042
     Dates: start: 20101001

REACTIONS (1)
  - SEPSIS [None]
